FAERS Safety Report 8544815-7 (Version None)
Quarter: 2012Q3

REPORT INFORMATION
  Report Type: 
  Country: None (occurrence: None)
  Receive Date: 20120727
  Receipt Date: 20120720
  Transmission Date: 20120928
  Serious: Yes (Other)
  Sender: FDA-Public Use
  Company Number: US-TEVA-349755USA

PATIENT
  Sex: Female

DRUGS (1)
  1. SEASONIQUE [Suspect]
     Dates: start: 20100101, end: 20110101

REACTIONS (3)
  - EXERCISE TOLERANCE DECREASED [None]
  - SCAR [None]
  - BREAST CANCER [None]
